FAERS Safety Report 5069169-2 (Version None)
Quarter: 2006Q3

REPORT INFORMATION
  Report Type: 
  Country: None (occurrence: None)
  Receive Date: 20060717
  Receipt Date: 20060315
  Transmission Date: 20061208
  Serious: No
  Sender: FDA-Public Use
  Company Number: 2006000631

PATIENT
  Age: 80 Year
  Sex: Male

DRUGS (3)
  1. TARCEVA [Suspect]
     Indication: PANCREATIC CARCINOMA
     Dosage: TARCEVA HELD FOR 4-5 DAYS BEFORE REDUCING DOSE
     Dates: end: 20060330
  2. TARCEVA [Suspect]
     Indication: PANCREATIC CARCINOMA
     Dosage: TARCEVA HELD FOR 4-5 DAYS BEFORE REDUCING DOSE
  3. GEMCITABINE [Concomitant]

REACTIONS (8)
  - ACNE [None]
  - ASTHENIA [None]
  - DYSPHAGIA [None]
  - EATING DISORDER [None]
  - PRURITUS [None]
  - PYREXIA [None]
  - RASH [None]
  - RASH MACULO-PAPULAR [None]
